FAERS Safety Report 7967182-6 (Version None)
Quarter: 2011Q4

REPORT INFORMATION
  Report Type: 
  Country: None (occurrence: None)
  Receive Date: 20111208
  Receipt Date: 20111208
  Transmission Date: 20120403
  Serious: No
  Sender: FDA-Public Use
  Company Number: None

PATIENT
  Age: 67 Year
  Sex: Male

DRUGS (1)
  1. ACTOS [Suspect]
     Dosage: 15MG ONCE/DAY ORAL , 30MG -} 45MG ONCE A DAY ORAL
     Route: 048
     Dates: start: 20060612, end: 20111027

REACTIONS (1)
  - BLADDER CANCER [None]
